FAERS Safety Report 7913209-7 (Version None)
Quarter: 2011Q4

REPORT INFORMATION
  Report Type: 
  Country: None (occurrence: None)
  Receive Date: 20111114
  Receipt Date: 20110927
  Transmission Date: 20120403
  Serious: Yes (Other)
  Sender: FDA-Public Use
  Company Number: FR-ALLERGAN-1112268US

PATIENT
  Age: 64 Year
  Sex: Female
  Weight: 54 kg

DRUGS (4)
  1. VISTABEL [Suspect]
     Indication: SKIN WRINKLING
     Dosage: 40 UNITS, SINGLE
     Route: 030
     Dates: start: 20110822, end: 20110822
  2. ESTIMA [Concomitant]
     Indication: MENOPAUSE
     Dosage: UNK
     Route: 048
     Dates: start: 20090101
  3. OESTRODOSE [Concomitant]
     Indication: MENOPAUSE
     Dosage: UNK
     Route: 061
     Dates: start: 20040101
  4. LEVOTHYROXINE SODIUM [Concomitant]
     Indication: HYPOTHYROIDISM
     Dosage: 125 UNK, QAM
     Route: 048
     Dates: start: 20000201

REACTIONS (2)
  - INJECTION SITE HAEMATOMA [None]
  - MUSCLE ATROPHY [None]
